FAERS Safety Report 18858912 (Version 1)
Quarter: 2021Q1

REPORT INFORMATION
  Report Type: Spontaneous
  Country: US (occurrence: US)
  Receive Date: 20210206
  Receipt Date: 20210206
  Transmission Date: 20210420
  Serious: No
  Sender: FDA-Public Use
  Company Number: None

PATIENT
  Age: 74 Year
  Sex: Female
  Weight: 63.9 kg

DRUGS (10)
  1. LEVOTHYROXINE 112MCG [Concomitant]
     Active Substance: LEVOTHYROXINE
  2. IBRANCE [Suspect]
     Active Substance: PALBOCICLIB
     Indication: BREAST CANCER
     Route: 048
     Dates: start: 20200724
  3. LOSARTAN 50MG [Concomitant]
     Active Substance: LOSARTAN
  4. FISH OIL 1000MG [Concomitant]
  5. SIMVASTATIN 20MG [Concomitant]
     Active Substance: SIMVASTATIN
  6. TYLENOL [Concomitant]
     Active Substance: ACETAMINOPHEN
  7. LETROZOLE. [Concomitant]
     Active Substance: LETROZOLE
  8. ADVIL 200MG [Concomitant]
  9. METOPROLOL TARTRATE 25MG [Concomitant]
     Active Substance: METOPROLOL TARTRATE
  10. XANAX [Concomitant]
     Active Substance: ALPRAZOLAM

REACTIONS (4)
  - Sinus congestion [None]
  - Nasal dryness [None]
  - Dizziness [None]
  - Ageusia [None]

NARRATIVE: CASE EVENT DATE: 20210206
